FAERS Safety Report 19473813 (Version 1)
Quarter: 2021Q2

REPORT INFORMATION
  Report Type: Spontaneous
  Country: NL (occurrence: NL)
  Receive Date: 20210629
  Receipt Date: 20210629
  Transmission Date: 20210717
  Serious: Yes (Other)
  Sender: FDA-Public Use
  Company Number: NL-PERRIGO-19NL006261

PATIENT
  Age: 57 Year
  Sex: Male

DRUGS (4)
  1. IBUPROFEN. [Suspect]
     Active Substance: IBUPROFEN
     Indication: TOOTH EXTRACTION
     Dosage: 600 MG, QD
     Route: 065
  2. RILPIVIRINE [Concomitant]
     Active Substance: RILPIVIRINE
     Indication: HIV INFECTION
  3. TENOFOVIR DISOPROXIL FUMARATE. [Interacting]
     Active Substance: TENOFOVIR DISOPROXIL FUMARATE
     Indication: HIV INFECTION
  4. EMTRICITABINE [Concomitant]
     Active Substance: EMTRICITABINE
     Indication: HIV INFECTION

REACTIONS (2)
  - Renal tubular dysfunction [Recovered/Resolved]
  - Drug interaction [Recovered/Resolved]
